FAERS Safety Report 23392347 (Version 1)
Quarter: 2024Q1

REPORT INFORMATION
  Report Type: Spontaneous
  Country: US (occurrence: None)
  Receive Date: 20240110
  Receipt Date: 20240110
  Transmission Date: 20240410
  Serious: Yes (Disabling)
  Sender: FDA-Public Use
  Company Number: None

PATIENT
  Age: 61 Year
  Sex: Male
  Weight: 158.76 kg

DRUGS (23)
  1. VANCOMYCIN [Suspect]
     Active Substance: VANCOMYCIN
     Indication: Osteomyelitis
     Dosage: TWICE A DAY INTO A VEIN
     Route: 042
     Dates: start: 20231105, end: 20231221
  2. POLYETHYLENE GLYCOL 3350 [Concomitant]
     Active Substance: POLYETHYLENE GLYCOL 3350
  3. SIMVASTATIN [Concomitant]
     Active Substance: SIMVASTATIN
  4. Carvedilol / Coreg [Concomitant]
  5. Amiloride / HCTZ [Concomitant]
  6. HYDRALAZINE [Concomitant]
     Active Substance: HYDRALAZINE HYDROCHLORIDE
  7. FERROUS SULFATE [Concomitant]
     Active Substance: FERROUS SULFATE
  8. FOLIC ACID [Concomitant]
     Active Substance: FOLIC ACID
  9. CYANOCOBALAMIN [Concomitant]
     Active Substance: CYANOCOBALAMIN
  10. Glucosamine + Chondroitin with MSM [Concomitant]
  11. LUTEIN [Concomitant]
     Active Substance: LUTEIN
  12. MAGNESIUM [Concomitant]
     Active Substance: MAGNESIUM
  13. OMEGA-3 ACIDS [Concomitant]
     Active Substance: OMEGA-3 FATTY ACIDS
  14. Probioti Formula [Concomitant]
  15. HERBALS\TURMERIC [Concomitant]
     Active Substance: HERBALS\TURMERIC
  16. VITAMIN B12 [Concomitant]
     Active Substance: CYANOCOBALAMIN
  17. VITAMIN C [Concomitant]
     Active Substance: ASCORBIC ACID
  18. VITAMIN D3 [Concomitant]
     Active Substance: CHOLECALCIFEROL
  19. ZINC GLUCONATE [Concomitant]
     Active Substance: ZINC GLUCONATE
  20. Alpha-Lipoic-Acid-300 [Concomitant]
  21. TYLENOL [Concomitant]
     Active Substance: ACETAMINOPHEN
  22. BETA CAROTENE [Concomitant]
     Active Substance: BETA CAROTENE
  23. COENZYME Q10 [Concomitant]
     Active Substance: DIETARY SUPPLEMENT\UBIDECARENONE

REACTIONS (3)
  - Pruritus [None]
  - Rash [None]
  - Dry skin [None]

NARRATIVE: CASE EVENT DATE: 20231221
